FAERS Safety Report 25942171 (Version 1)
Quarter: 2025Q4

REPORT INFORMATION
  Report Type: Report from Study
  Country: EU (occurrence: EU)
  Receive Date: 20251020
  Receipt Date: 20251020
  Transmission Date: 20260117
  Serious: Yes (Death, Other)
  Sender: TAKEDA
  Company Number: EU-TAKEDA-2023TUS123585

PATIENT
  Sex: Male
  Weight: 58 kg

DRUGS (1)
  1. BRIGATINIB [Suspect]
     Active Substance: BRIGATINIB
     Indication: Non-small cell lung cancer
     Dosage: UNK

REACTIONS (2)
  - Non-small cell lung cancer [Fatal]
  - Drug ineffective [Unknown]

NARRATIVE: CASE EVENT DATE: 20250321
